FAERS Safety Report 22275968 (Version 1)
Quarter: 2023Q2

REPORT INFORMATION
  Report Type: Spontaneous
  Country: US (occurrence: None)
  Receive Date: 20230501
  Receipt Date: 20230501
  Transmission Date: 20230721
  Serious: No
  Sender: FDA-Public Use
  Company Number: None

PATIENT
  Age: 3 Year
  Sex: Female
  Weight: 20.9 kg

DRUGS (1)
  1. CEFDINIR [Suspect]
     Active Substance: CEFDINIR
     Indication: Pneumonia bacterial
     Dosage: FREQUENCY : DAILY;?
     Route: 048
     Dates: start: 20230426

REACTIONS (4)
  - Drug hypersensitivity [None]
  - Hyperhidrosis [None]
  - Rash [None]
  - Miliaria [None]

NARRATIVE: CASE EVENT DATE: 20230428
